FAERS Safety Report 20765755 (Version 2)
Quarter: 2022Q4

REPORT INFORMATION
  Report Type: Spontaneous
  Country: US (occurrence: US)
  Receive Date: 20220428
  Receipt Date: 20221013
  Transmission Date: 20230112
  Serious: Yes (Other)
  Sender: FDA-Public Use
  Company Number: US-Vifor (International) Inc.-VIT-2022-02385

PATIENT
  Age: 63 Year
  Sex: Male

DRUGS (12)
  1. VELTASSA [Suspect]
     Active Substance: PATIROMER
     Indication: Hyperkalaemia
     Dosage: DISSOLVE CONTENTS OF 1 PACKET INTO 1/3 CUP OF WATER AND DRINK FULL AMOUNT ONCE DAILY AS DIRECTED
     Route: 048
     Dates: start: 20220311
  2. VELTASSA [Suspect]
     Active Substance: PATIROMER
     Dosage: DISSOLVE CONTENTS OF 1 PACKET INTO 1/3 CUP OF WATER AND DRINK FULL AMOUNT ONCE DAILY AS DIRECTED
     Route: 048
     Dates: start: 20220408
  3. AMLODIPINE [Concomitant]
     Active Substance: AMLODIPINE BESYLATE
  4. ASPIRIN [Concomitant]
     Active Substance: ASPIRIN
  5. BASAGLAR [Concomitant]
     Active Substance: INSULIN GLARGINE
  6. CARVEDILOL [Concomitant]
     Active Substance: CARVEDILOL
  7. CLONIDINE [Concomitant]
     Active Substance: CLONIDINE
     Dosage: 0.1/24HR
  8. COENZYME Q10 [Concomitant]
     Active Substance: DIETARY SUPPLEMENT\UBIDECARENONE
  9. LISINOPRIL [Concomitant]
     Active Substance: LISINOPRIL
  10. TRADJENTA [Concomitant]
     Active Substance: LINAGLIPTIN
  11. VASCEPA [Concomitant]
     Active Substance: ICOSAPENT ETHYL
  12. VITAMIN D [Concomitant]
     Active Substance: VITAMIN D NOS

REACTIONS (4)
  - Atrial fibrillation [Not Recovered/Not Resolved]
  - Diarrhoea [Not Recovered/Not Resolved]
  - Vomiting [Not Recovered/Not Resolved]
  - Nausea [Not Recovered/Not Resolved]

NARRATIVE: CASE EVENT DATE: 20220101
